FAERS Safety Report 4548756-1 (Version None)
Quarter: 2005Q1

REPORT INFORMATION
  Report Type: 
  Country: None (occurrence: None)
  Receive Date: 20050110
  Receipt Date: 20041230
  Transmission Date: 20050727
  Serious: Yes (Hospitalization)
  Sender: FDA-Public Use
  Company Number: FR-AMGEN-UK105673

PATIENT
  Age: 54 Year
  Sex: Male
  Weight: 64 kg

DRUGS (6)
  1. NEUPOGEN [Suspect]
     Indication: CHEMOTHERAPY
     Route: 058
     Dates: start: 20041116, end: 20041201
  2. ARACYTINE [Suspect]
     Route: 042
     Dates: start: 20041111, end: 20041115
  3. FUNGIZONE [Suspect]
     Route: 048
     Dates: start: 20041110, end: 20041201
  4. IDARUBICIN HCL [Suspect]
     Route: 042
     Dates: start: 20041111, end: 20041113
  5. OFLOCET [Concomitant]
     Route: 065
  6. CEFEPIME [Concomitant]
     Route: 065

REACTIONS (8)
  - ACUTE RESPIRATORY DISTRESS SYNDROME [None]
  - BACTERIAL INFECTION [None]
  - CULTURE POSITIVE [None]
  - CULTURE STOOL POSITIVE [None]
  - DRUG TOXICITY [None]
  - ENTEROBACTER INFECTION [None]
  - ESCHERICHIA INFECTION [None]
  - LUNG INFILTRATION [None]
